FAERS Safety Report 24645414 (Version 1)
Quarter: 2024Q4

REPORT INFORMATION
  Report Type: Spontaneous
  Country: US (occurrence: US)
  Receive Date: 20241121
  Receipt Date: 20241121
  Transmission Date: 20250114
  Serious: Yes (Other)
  Sender: TEVA
  Company Number: US-TEVA-VS-3264081

PATIENT
  Sex: Female

DRUGS (2)
  1. MORPHINE [Suspect]
     Active Substance: MORPHINE
     Indication: Pain
     Route: 065
  2. TIAGABINE HYDROCHLORIDE [Suspect]
     Active Substance: TIAGABINE HYDROCHLORIDE
     Indication: Generalised tonic-clonic seizure
     Route: 048

REACTIONS (6)
  - Meningioma [Unknown]
  - Drug level increased [Unknown]
  - Abnormal behaviour [Recovered/Resolved]
  - Brain fog [Unknown]
  - Seizure [Recovered/Resolved]
  - Toxicity to various agents [Recovered/Resolved]
